FAERS Safety Report 9772295 (Version 1)
Quarter: 2013Q4

REPORT INFORMATION
  Report Type: Spontaneous
  Country: FR (occurrence: FR)
  Receive Date: 20131219
  Receipt Date: 20131219
  Transmission Date: 20140711
  Serious: Yes (Hospitalization, Other)
  Sender: FDA-Public Use
  Company Number: FR-BAYER-2013-151067

PATIENT
  Age: 73 Year
  Sex: Male

DRUGS (2)
  1. CIFLOX [Suspect]
     Indication: PNEUMONIA
     Dosage: 1 DF, QD
     Dates: start: 201312
  2. AUGMENTIN [Concomitant]

REACTIONS (2)
  - Blindness [None]
  - Visual impairment [None]
